FAERS Safety Report 5154627-2 (Version None)
Quarter: 2006Q4

REPORT INFORMATION
  Report Type: 
  Country: None (occurrence: None)
  Receive Date: 20061113
  Receipt Date: 19990804
  Transmission Date: 20070319
  Serious: Yes (Hospitalization)
  Sender: FDA-Public Use
  Company Number: 2006118291

PATIENT
  Age: 46 Year
  Sex: Female

DRUGS (7)
  1. IRINOTECAN HCL [Suspect]
     Indication: COLORECTAL CANCER METASTATIC
     Dosage: 300 MG, INTRAVENOUS
     Route: 042
     Dates: start: 19990721, end: 19990721
  2. FLUOROURACIL [Suspect]
     Indication: COLORECTAL CANCER METASTATIC
     Dosage: 1350 MG, INTRAVENOUS
     Route: 042
     Dates: start: 19990721, end: 19990722
  3. FOLINIC ACID              (FOLINIC ACID) [Suspect]
     Indication: COLORECTAL CANCER METASTATIC
     Dosage: 270 MG, INTRAVENOUS
     Route: 042
     Dates: start: 19990721, end: 19990722
  4. OXALIPLATIN [Suspect]
     Indication: COLORECTAL CANCER METASTATIC
     Dosage: 110 MG, INTRAVENOUS
     Route: 042
     Dates: start: 19990721, end: 19990721
  5. DAFALGAN       (PARACETAMOL) [Concomitant]
  6. POTASSIUM ACETATE [Concomitant]
  7. LEXOMIL       (BROMAZEPAM) [Concomitant]

REACTIONS (9)
  - ANAEMIA [None]
  - DIARRHOEA [None]
  - INTESTINAL OBSTRUCTION [None]
  - INTESTINAL PERFORATION [None]
  - MESENTERIC VASCULAR INSUFFICIENCY [None]
  - MULTI-ORGAN FAILURE [None]
  - PERITONEAL CARCINOMA [None]
  - PERITONITIS [None]
  - SHOCK [None]
